FAERS Safety Report 11124217 (Version 1)
Quarter: 2015Q2

REPORT INFORMATION
  Report Type: Spontaneous
  Country: US (occurrence: None)
  Receive Date: 20150519
  Receipt Date: 20150519
  Transmission Date: 20150821
  Serious: Yes (Hospitalization)
  Sender: FDA-Public Use
  Company Number: None

PATIENT
  Age: 66 Year
  Sex: Female
  Weight: 87.3 kg

DRUGS (3)
  1. RITUXIMAB (MOAB C2B8 ANTI CD20, CHIMERIC) [Suspect]
     Active Substance: RITUXIMAB
     Dates: end: 20150401
  2. FLUDARABINE PHOSPHATE. [Suspect]
     Active Substance: FLUDARABINE PHOSPHATE
     Dates: end: 20150403
  3. CYCLOPHOSPHARMIDE (CYCLOPHOSPHAMIDE) (CYCLOPHOSPHAMIDE) [Suspect]
     Active Substance: CYCLOPHOSPHAMIDE
     Dates: end: 20150403

REACTIONS (9)
  - Leukopenia [None]
  - Fatigue [None]
  - Hyperhidrosis [None]
  - Anaemia [None]
  - Chills [None]
  - Staphylococcus test positive [None]
  - Blood culture positive [None]
  - Thrombocytopenia [None]
  - Pyrexia [None]

NARRATIVE: CASE EVENT DATE: 20150509
